FAERS Safety Report 23829866 (Version 1)
Quarter: 2024Q2

REPORT INFORMATION
  Report Type: Report from Study
  Country: US (occurrence: US)
  Receive Date: 20240508
  Receipt Date: 20240508
  Transmission Date: 20240715
  Serious: Yes (Life-Threatening, Hospitalization, Other)
  Sender: FDA-Public Use
  Company Number: US-TAKEDA-2024TUS044496

PATIENT
  Sex: Male

DRUGS (1)
  1. VEDOLIZUMAB [Suspect]
     Active Substance: VEDOLIZUMAB
     Indication: Product used for unknown indication
     Dosage: 300 MILLIGRAM, Q6WEEKS
     Route: 042

REACTIONS (8)
  - Cardiac arrest [Unknown]
  - Rectal haemorrhage [Unknown]
  - Weight decreased [Unknown]
  - Alopecia [Unknown]
  - Diarrhoea [Unknown]
  - Hypophagia [Unknown]
  - Gait inability [Unknown]
  - Off label use [Unknown]
